FAERS Safety Report 4464279-2 (Version None)
Quarter: 2004Q4

REPORT INFORMATION
  Report Type: 
  Country: None (occurrence: None)
  Receive Date: 20041001
  Receipt Date: 20040929
  Transmission Date: 20050328
  Serious: Yes (Life-Threatening)
  Sender: FDA-Public Use
  Company Number: PHBS2004JP12941

PATIENT
  Age: 39 Year
  Sex: Female

DRUGS (4)
  1. MELLARIL [Suspect]
     Indication: SCHIZOPHRENIA
     Route: 048
  2. QUETIAPINE FUMARATE [Suspect]
     Route: 048
  3. BIPERIDEN HYDROCHLORIDE [Suspect]
     Route: 048
  4. EPERISONE HYDROCHLORIDE [Suspect]
     Route: 048

REACTIONS (7)
  - ANAPHYLACTIC REACTION [None]
  - BLOOD PRESSURE SYSTOLIC DECREASED [None]
  - FLUSHING [None]
  - OBSTRUCTIVE AIRWAYS DISORDER [None]
  - OXYGEN SATURATION DECREASED [None]
  - PCO2 DECREASED [None]
  - TACHYCARDIA [None]
